FAERS Safety Report 12233960 (Version 1)
Quarter: 2016Q2

REPORT INFORMATION
  Report Type: Spontaneous
  Country: US (occurrence: US)
  Receive Date: 20160404
  Receipt Date: 20160404
  Transmission Date: 20160815
  Serious: No
  Sender: FDA-Public Use
  Company Number: US-BAYER-2016-062913

PATIENT

DRUGS (1)
  1. STIVARGA [Suspect]
     Active Substance: REGORAFENIB
     Indication: COLON CANCER
     Dosage: 120 MG, QD AT THE SAME TIME EACH DAY WITH A LOW FAT BREAKFAST, 3 WEEKS ON AND 1 WEEK OFF
     Route: 048
     Dates: start: 20160305

REACTIONS (2)
  - Decreased appetite [None]
  - Weight decreased [None]
